FAERS Safety Report 6714861-4 (Version None)
Quarter: 2010Q2

REPORT INFORMATION
  Report Type: 
  Country: None (occurrence: None)
  Receive Date: 20100506
  Receipt Date: 20100506
  Transmission Date: 20101027
  Serious: Yes (Life-Threatening, Hospitalization)
  Sender: FDA-Public Use
  Company Number: None

PATIENT
  Sex: Female
  Weight: 14.0615 kg

DRUGS (2)
  1. TYLENOL COLD LIQUID MCNEIL [Suspect]
     Indication: FEELING COLD
     Dosage: 1.5 ML PO SEVERAL DAYS
     Route: 048
  2. TYLENOL LIQUID MCNEIL [Suspect]
     Indication: PYREXIA
     Dosage: 5 ML PO SEVERAL DAYS
     Route: 048

REACTIONS (6)
  - DEHYDRATION [None]
  - EATING DISORDER [None]
  - PYREXIA [None]
  - SALMONELLOSIS [None]
  - VOMITING [None]
  - WEIGHT DECREASED [None]
